FAERS Safety Report 8971320 (Version 1)
Quarter: 2012Q4

REPORT INFORMATION
  Report Type: 
  Country: BR (occurrence: BR)
  Receive Date: 20121217
  Receipt Date: 20121217
  Transmission Date: 20130627
  Serious: Yes (Death, Other)
  Sender: FDA-Public Use
  Company Number: PHHY2012BR115609

PATIENT
  Sex: Female
  Weight: 42 kg

DRUGS (4)
  1. EXELON PATCH [Suspect]
     Indication: MEMORY IMPAIRMENT
     Dosage: 9.5 mg, 1 patch daily
     Route: 062
     Dates: start: 20120528
  2. PURAN T4 [Concomitant]
     Indication: THYROIDITIS
     Dosage: 1 DF, in fasting
  3. AMIODARONE [Concomitant]
     Indication: PULSE ABNORMAL
     Dosage: 1 DF, a day
     Route: 048
  4. ALOIS [Concomitant]
     Indication: MEMORY IMPAIRMENT
     Dosage: 2 DF, a day
     Route: 048

REACTIONS (4)
  - Pneumonia [Fatal]
  - Dementia Alzheimer^s type [Fatal]
  - Cardiac arrest [Fatal]
  - Choking [Fatal]
